FAERS Safety Report 24127111 (Version 7)
Quarter: 2024Q4

REPORT INFORMATION
  Report Type: Spontaneous
  Country: US (occurrence: US)
  Receive Date: 20240723
  Receipt Date: 20241219
  Transmission Date: 20250115
  Serious: Yes (Other)
  Sender: APELLIS PHARMACEUTICALS
  Company Number: US-APELLIS-2024-APL-0000436

PATIENT

DRUGS (16)
  1. SYFOVRE [Suspect]
     Active Substance: PEGCETACOPLAN
     Indication: Dry age-related macular degeneration
     Dosage: UNKNOWN EVERY 8 WEEKS
     Route: 031
     Dates: end: 20240515
  2. XARELTO [Concomitant]
     Active Substance: RIVAROXABAN
     Indication: Product used for unknown indication
     Dosage: 15 MG ORAL TABLET 1 QDAY
     Route: 048
  3. BREO ELLIPTA [Concomitant]
     Active Substance: FLUTICASONE FUROATE\VILANTEROL TRIFENATATE
     Indication: Product used for unknown indication
     Dosage: 30 ACTUAT
  4. GABAPENTIN [Concomitant]
     Active Substance: GABAPENTIN
     Indication: Product used for unknown indication
     Dosage: 300 MG ORAL TABLET 1CAPSULE QHS
     Route: 048
  5. ATORVASTATIN [Concomitant]
     Active Substance: ATORVASTATIN
     Indication: Product used for unknown indication
     Dosage: 10 MG ORAL TABLET QDAY.
     Route: 048
  6. BUMETANIDE [Concomitant]
     Active Substance: BUMETANIDE
     Indication: Product used for unknown indication
     Dosage: 1 MG ORAL TABLET  1 TABLET QDAY
     Route: 048
  7. METOPROLOL TARTRATE [Concomitant]
     Active Substance: METOPROLOL TARTRATE
     Indication: Product used for unknown indication
     Dosage: 50 MG ORAL TABLET 1 BID.
     Route: 048
  8. LEVOTHYROXINE SODIUM [Concomitant]
     Active Substance: LEVOTHYROXINE SODIUM
     Indication: Product used for unknown indication
     Dosage: 88 MCG ORAL TABLET 1 TABLET QDAY.
     Route: 048
  9. OMEPRAZOLE [Concomitant]
     Active Substance: OMEPRAZOLE
     Indication: Product used for unknown indication
     Dosage: 40 MG DELAYED RELEASE CAPSULE 1 TABLET QDAY
  10. FERROUS SULFATE [Concomitant]
     Active Substance: FERROUS SULFATE
     Indication: Product used for unknown indication
     Dosage: 325MG 1 QDAY
  11. IMODIUM A-D [Concomitant]
     Active Substance: LOPERAMIDE HYDROCHLORIDE
     Indication: Product used for unknown indication
     Dosage: 2 MG ORAL TABLET 3 TABLET QDAY.
     Route: 048
  12. VITAMIN D3 [Concomitant]
     Active Substance: CHOLECALCIFEROL
     Indication: Product used for unknown indication
     Dosage: 2000 UNIT ORAL CAPSULE 1 QDAY
     Route: 048
  13. FISH OIL [Concomitant]
     Active Substance: FISH OIL
     Indication: Product used for unknown indication
     Dosage: 1000 1 QDAY
  14. VITAMIN B12 [Concomitant]
     Active Substance: CYANOCOBALAMIN
     Indication: Product used for unknown indication
     Dosage: 1000MCG 2 QDAY
  15. MINERALS\VITAMINS [Concomitant]
     Active Substance: MINERALS\VITAMINS
     Indication: Product used for unknown indication
     Dosage: 1 TABLET BID
  16. PROPARACAINE HYDROCHLORIDE [Concomitant]
     Active Substance: PROPARACAINE HYDROCHLORIDE
     Indication: Product used for unknown indication
     Dosage: 0.5 % DROPS

REACTIONS (13)
  - Retinal vein occlusion [Recovered/Resolved]
  - Macular oedema [Recovered/Resolved]
  - Metastatic ocular melanoma [Unknown]
  - Metastases to liver [Unknown]
  - Ocular hypertension [Unknown]
  - Retinal vasculitis [Recovered/Resolved]
  - Choroidal neovascularisation [Unknown]
  - Retinal haemorrhage [Unknown]
  - Retinal ischaemia [Recovering/Resolving]
  - Vitreous haze [Unknown]
  - Eye inflammation [Recovering/Resolving]
  - Vitreal cells [Unknown]
  - Visual impairment [Unknown]
